FAERS Safety Report 4438009-4 (Version None)
Quarter: 2004Q3

REPORT INFORMATION
  Report Type: 
  Country: None (occurrence: None)
  Receive Date: 20040831
  Receipt Date: 20040505
  Transmission Date: 20050211
  Serious: Yes (Hospitalization)
  Sender: FDA-Public Use
  Company Number: US-GLAXOSMITHKLINE-A0509648A

PATIENT
  Age: 54 Year
  Sex: Female

DRUGS (5)
  1. WELLBUTRIN [Suspect]
     Dosage: 450MG PER DAY
     Route: 048
     Dates: start: 20031001
  2. CELEXA [Concomitant]
  3. LAMICTAL [Concomitant]
  4. ZYPREXA [Concomitant]
  5. BUSPAR [Concomitant]

REACTIONS (1)
  - GRAND MAL CONVULSION [None]
